FAERS Safety Report 7245605-8 (Version None)
Quarter: 2011Q1

REPORT INFORMATION
  Report Type: 
  Country: None (occurrence: None)
  Receive Date: 20110126
  Receipt Date: 20110113
  Transmission Date: 20110831
  Serious: Yes (Other)
  Sender: FDA-Public Use
  Company Number: PHHY2011DE04417

PATIENT
  Age: 13 Year

DRUGS (8)
  1. AMLODIPINE [Suspect]
     Dosage: 5 TABLETS FOR TOTAL AMOUNT 25
     Route: 048
  2. DICLOFENAC [Suspect]
     Dosage: UNK
     Route: 048
  3. FUROSEMIDE [Suspect]
     Dosage: UNK
     Route: 048
  4. PARACETAMOL [Suspect]
     Dosage: 2 DF, TOTAL 1000MG
     Route: 048
  5. NOVALGIN [Suspect]
     Dosage: UNK
  6. BISOPROLOL [Suspect]
     Dosage: 2 DF TOTAL AMOUNT 10 MG
     Route: 048
  7. IBUPROFEN [Suspect]
     Dosage: TOTAL DOSE 1200 MG
     Route: 048
  8. FERRO SANOL COMP [Suspect]
     Dosage: UNK
     Route: 048

REACTIONS (4)
  - NAUSEA [None]
  - SUICIDE ATTEMPT [None]
  - ABDOMINAL PAIN [None]
  - VOMITING [None]
